FAERS Safety Report 5731869-6 (Version None)
Quarter: 2008Q2

REPORT INFORMATION
  Report Type: 
  Country: None (occurrence: None)
  Receive Date: 20080508
  Receipt Date: 20070719
  Transmission Date: 20081010
  Serious: No
  Sender: FDA-Public Use
  Company Number: US-BRISTOL-MYERS SQUIBB COMPANY-13851001

PATIENT
  Sex: Female
  Weight: 63 kg

DRUGS (4)
  1. METAGLIP [Suspect]
     Indication: DIABETES MELLITUS
     Route: 048
  2. BENICAR HCT [Concomitant]
  3. HYDROCHLOROTHIAZIDE [Concomitant]
  4. NEXIUM [Concomitant]

REACTIONS (1)
  - DYSPHAGIA [None]
